FAERS Safety Report 6657670-7 (Version None)
Quarter: 2010Q1

REPORT INFORMATION
  Report Type: 
  Country: None (occurrence: None)
  Receive Date: 20100330
  Receipt Date: 20100324
  Transmission Date: 20100710
  Serious: Yes (Other)
  Sender: FDA-Public Use
  Company Number: US-SANOFI-AVENTIS-2010SA017101

PATIENT
  Sex: Female

DRUGS (2)
  1. MULTAQ [Suspect]
     Dates: start: 20090901, end: 20100101
  2. SIMVASTATIN [Concomitant]
     Dates: start: 20090501

REACTIONS (2)
  - HEPATIC CIRRHOSIS [None]
  - LIVER FUNCTION TEST ABNORMAL [None]
